FAERS Safety Report 7386255-2 (Version None)
Quarter: 2011Q1

REPORT INFORMATION
  Report Type: 
  Country: None (occurrence: None)
  Receive Date: 20110331
  Receipt Date: 20110321
  Transmission Date: 20110831
  Serious: Yes (Hospitalization)
  Sender: FDA-Public Use
  Company Number: US-NOVOPROD-324132

PATIENT
  Sex: Male
  Weight: 92.9 kg

DRUGS (9)
  1. NOVORAPID FLEXPEN [Suspect]
     Dosage: 67 IU, QD
     Route: 058
     Dates: start: 20110226
  2. CLONIDINE [Concomitant]
     Indication: HYPERTENSION
     Dosage: 0.1 MG, QD
     Dates: start: 20100925
  3. INSULATARD HM(GE) [Suspect]
     Indication: TYPE 1 DIABETES MELLITUS
     Dosage: 50 IU, QD
     Route: 058
     Dates: start: 20100930, end: 20101006
  4. BENADRYL [Concomitant]
     Dosage: 50 MG, UNK
     Dates: start: 20110224
  5. IDEG FLEXPEN [Suspect]
     Indication: TYPE 1 DIABETES MELLITUS
     Dosage: 63 IU, QD
     Route: 058
     Dates: start: 20100401, end: 20100929
  6. IDEG FLEXPEN [Suspect]
     Dosage: 63 IU, QD
     Route: 058
     Dates: start: 20101007, end: 20110224
  7. IDEG FLEXPEN [Suspect]
     Dosage: 63 IU, QD
     Route: 058
     Dates: start: 20110228
  8. NOVORAPID FLEXPEN [Suspect]
     Indication: TYPE 1 DIABETES MELLITUS
     Dosage: 67 IU, QD
     Route: 058
     Dates: start: 20100401, end: 20110224
  9. ALTACE [Concomitant]
     Indication: HYPERTENSION
     Dosage: 2.5 MG, QD
     Route: 048
     Dates: start: 20090101

REACTIONS (3)
  - DIABETIC KETOACIDOSIS [None]
  - HYPOVOLAEMIA [None]
  - HYPEROSMOLAR STATE [None]
